FAERS Safety Report 15449741 (Version 1)
Quarter: 2018Q4

REPORT INFORMATION
  Report Type: Spontaneous
  Country: US (occurrence: US)
  Receive Date: 20181001
  Receipt Date: 20181001
  Transmission Date: 20190204
  Serious: Yes (Hospitalization)
  Sender: FDA-Public Use
  Company Number: US-ASTRAZENECA-2018SF27322

PATIENT
  Age: 62 Year
  Sex: Male

DRUGS (17)
  1. LISINOPRIL. [Suspect]
     Active Substance: LISINOPRIL
     Route: 048
  2. OMEPRAZON [Suspect]
     Active Substance: OMEPRAZOLE
     Route: 048
  3. URSO [Suspect]
     Active Substance: URSODIOL
     Route: 065
  4. FLUCONAZOLE. [Suspect]
     Active Substance: FLUCONAZOLE
     Route: 065
  5. IDARUBICIN HYDROCHLORIDE. [Suspect]
     Active Substance: IDARUBICIN HYDROCHLORIDE
     Route: 065
  6. AZACITIDINE. [Suspect]
     Active Substance: AZACITIDINE
     Route: 065
  7. FILGRASTIM [Suspect]
     Active Substance: FILGRASTIM
     Route: 065
  8. METOPROLOL TARTRATE. [Suspect]
     Active Substance: METOPROLOL TARTRATE
     Route: 065
  9. LECTISOL [Suspect]
     Active Substance: DAPSONE
     Route: 065
  10. ANTITHYMOCYTE IMMUNOGLOBULIN [Suspect]
     Active Substance: THYMOCYTE IMMUNE GLOBULIN NOS
     Route: 065
  11. SUCRALFATE. [Suspect]
     Active Substance: SUCRALFATE
     Route: 065
  12. ACICLOVIR [Suspect]
     Active Substance: ACYCLOVIR
     Route: 065
  13. CYTARABINE. [Suspect]
     Active Substance: CYTARABINE
     Route: 065
  14. BUDESONIDE. [Suspect]
     Active Substance: BUDESONIDE
     Route: 055
  15. OXYCODONE [Suspect]
     Active Substance: OXYCODONE
     Route: 065
  16. TACROLIMUS HYDRATE [Suspect]
     Active Substance: TACROLIMUS
     Route: 065
  17. METHOTREXATE. [Suspect]
     Active Substance: METHOTREXATE
     Route: 065

REACTIONS (6)
  - Myocardial ischaemia [Unknown]
  - Hepatic failure [Unknown]
  - Post transplant lymphoproliferative disorder [Unknown]
  - Metabolic acidosis [Unknown]
  - Renal failure [Unknown]
  - Encephalopathy [Unknown]
